FAERS Safety Report 6346064-X (Version None)
Quarter: 2009Q3

REPORT INFORMATION
  Report Type: 
  Country: None (occurrence: None)
  Receive Date: 20090909
  Receipt Date: 20090828
  Transmission Date: 20100115
  Serious: No
  Sender: FDA-Public Use
  Company Number: KR-ELI_LILLY_AND_COMPANY-KR200908006300

PATIENT
  Age: 32 Year
  Sex: Female

DRUGS (3)
  1. OLANZAPINE [Suspect]
     Indication: SCHIZOPHRENIA, PARANOID TYPE
     Dosage: 10 MG, DAILY (1/D)
  2. OLANZAPINE [Suspect]
     Dosage: 5 MG, DAILY (1/D)
  3. DIAZEPAM [Concomitant]
     Indication: SLEEP DISORDER
     Dosage: 5 MG, DAILY (1/D)

REACTIONS (7)
  - DELUSION OF REFERENCE [None]
  - DYSKINESIA [None]
  - EXCESSIVE EYE BLINKING [None]
  - GRIMACING [None]
  - MENSTRUATION IRREGULAR [None]
  - TARDIVE DYSKINESIA [None]
  - WEIGHT INCREASED [None]
